FAERS Safety Report 25453078 (Version 1)
Quarter: 2025Q2

REPORT INFORMATION
  Report Type: Report from Study
  Country: US (occurrence: US)
  Receive Date: 20250618
  Receipt Date: 20250618
  Transmission Date: 20250716
  Serious: No
  Sender: MALLINCKRODT
  Company Number: US-MALLINCKRODT-MNK202503183

PATIENT
  Age: 46 Year
  Sex: Female

DRUGS (1)
  1. CORTICOTROPIN [Suspect]
     Active Substance: CORTICOTROPIN
     Indication: Multiple sclerosis

REACTIONS (9)
  - Balance disorder [Unknown]
  - Cognitive disorder [Unknown]
  - Condition aggravated [Unknown]
  - Fall [Unknown]
  - Fatigue [Unknown]
  - Injection site bruising [Not Recovered/Not Resolved]
  - Mood swings [Unknown]
  - Drug ineffective [Unknown]
  - Incorrect product administration duration [Unknown]

NARRATIVE: CASE EVENT DATE: 20250519
